FAERS Safety Report 9531153 (Version 1)
Quarter: 2013Q3

REPORT INFORMATION
  Report Type: Spontaneous
  Country: US (occurrence: None)
  Receive Date: 20130916
  Receipt Date: 20130916
  Transmission Date: 20140515
  Serious: Yes (Other)
  Sender: FDA-Public Use
  Company Number: None

PATIENT
  Age: 14 Year
  Sex: Male
  Weight: 41.73 kg

DRUGS (1)
  1. METHYLPHENIDATE ER [Suspect]
     Indication: ATTENTION DEFICIT/HYPERACTIVITY DISORDER
     Dosage: 1 TABLET
     Route: 048
     Dates: start: 20130723, end: 20130808

REACTIONS (7)
  - Mood altered [None]
  - Aggression [None]
  - Educational problem [None]
  - Educational problem [None]
  - Therapeutic response unexpected with drug substitution [None]
  - Drug ineffective [None]
  - Product substitution issue [None]
